FAERS Safety Report 19320547 (Version 1)
Quarter: 2021Q2

REPORT INFORMATION
  Report Type: Spontaneous
  Country: US (occurrence: US)
  Receive Date: 20210527
  Receipt Date: 20210527
  Transmission Date: 20210717
  Serious: No
  Sender: FDA-Public Use
  Company Number: US-SA-2021SA170818

PATIENT
  Age: 42 Year
  Sex: Female

DRUGS (1)
  1. DUPIXENT [Suspect]
     Active Substance: DUPILUMAB
     Indication: SKIN DISORDER
     Dosage: DRUG STRUCTURE DOSAGE : 300 MG DRUG INTERVAL DOSAGE : Q 2 WEEKS DRUG TREATMENT DURATION: ~3 YEARS
     Dates: start: 2018

REACTIONS (7)
  - Eye swelling [Unknown]
  - Rash [Unknown]
  - Product packaging issue [Unknown]
  - Stress [Unknown]
  - Unevaluable event [Recovered/Resolved]
  - Insomnia [Unknown]
  - Product use in unapproved indication [Unknown]

NARRATIVE: CASE EVENT DATE: 20210519
